FAERS Safety Report 7454808-9 (Version None)
Quarter: 2011Q2

REPORT INFORMATION
  Report Type: 
  Country: None (occurrence: None)
  Receive Date: 20110503
  Receipt Date: 20100624
  Transmission Date: 20111010
  Serious: No
  Sender: FDA-Public Use
  Company Number: US-PFIZER INC-2010056136

PATIENT
  Age: 30 Year
  Sex: Female
  Weight: 92.971 kg

DRUGS (2)
  1. DEPO-PROVERA [Suspect]
     Indication: BREAST TENDERNESS
  2. DEPO-PROVERA [Suspect]
     Indication: OFF LABEL USE
     Dosage: 150 MG, UNK
     Route: 030
     Dates: start: 20091211, end: 20100401

REACTIONS (2)
  - INAPPROPRIATE SCHEDULE OF DRUG ADMINISTRATION [None]
  - DRUG INEFFECTIVE FOR UNAPPROVED INDICATION [None]
